FAERS Safety Report 7264940-0 (Version None)
Quarter: 2011Q1

REPORT INFORMATION
  Report Type: 
  Country: None (occurrence: None)
  Receive Date: 20110131
  Receipt Date: 20110121
  Transmission Date: 20110831
  Serious: Yes (Hospitalization, Other)
  Sender: FDA-Public Use
  Company Number: GB-BAYER-2010-006169

PATIENT
  Sex: Female
  Weight: 97.8 kg

DRUGS (17)
  1. SORAFENIB (RAF KINASE INHIBITOR) [Suspect]
     Dosage: 200 MG, BID
     Route: 048
     Dates: start: 20101230, end: 20110118
  2. LOPERAMIDE [Concomitant]
     Indication: DIARRHOEA
     Dosage: 4 MG, UNK
     Route: 048
     Dates: start: 20100612, end: 20100712
  3. LEVOROXIN [Concomitant]
     Indication: HYPOTHYROIDISM
     Dosage: 200 MCG/24HR, QD (START DATE: PRE-STUDY)
  4. LANSOPRAZOLE [Concomitant]
     Indication: ABDOMINAL DISCOMFORT
     Dosage: 30 MG, QD (START DATE: PRE-STUDY)
     Route: 048
  5. MIRTAZAPINE [Concomitant]
     Indication: DEPRESSION
     Dosage: 15 MG, QD (START DATE: PRE-STUDY)
     Route: 048
  6. NOVORAPID [Concomitant]
     Indication: DIABETES MELLITUS
     Dosage: 100 IU, QD (START DATE: PRE-STUDY)
     Route: 058
  7. OXYCODONE [Concomitant]
     Indication: ANALGESIC THERAPY
     Dosage: 320 MG, UNK
     Route: 048
  8. LOPERAMIDE [Concomitant]
     Dosage: 4 MG, QD (START DATE: PRE-STUDY)
     Route: 048
     Dates: start: 20101204
  9. ENALAPRIL MALEATE [Concomitant]
     Indication: HYPERTENSION
     Dosage: 40 MG, QD (START DATE: PRE-STUDY)
     Route: 048
  10. SORAFENIB (RAF KINASE INHIBITOR) [Suspect]
     Indication: THYROID CANCER
     Dosage: 400 MG, BID
     Route: 048
     Dates: start: 20101124, end: 20101212
  11. METOCLOPRAMIDE [Concomitant]
     Indication: NAUSEA
     Dosage: 60 MG, QD (START DATE: PRE-STUDY)
     Route: 048
  12. METFORMIN [Concomitant]
     Indication: DIABETES MELLITUS
     Dosage: 2 G, UNK
     Route: 048
  13. LOPERAMIDE [Concomitant]
     Dosage: 4 MG, UNK
     Route: 048
     Dates: start: 20101028, end: 20101029
  14. ATORVASTATIN [Concomitant]
     Indication: HYPERCHOLESTEROLAEMIA
     Dosage: 80 MG, QD (START DATE: PRE-STUDY)
     Route: 048
  15. SORAFENIB (RAF KINASE INHIBITOR) [Suspect]
     Dosage: 200 MG, BID
     Route: 048
     Dates: start: 20110119, end: 20110120
  16. AMITRIPTYLINE HCL [Concomitant]
     Indication: DEPRESSION
     Dosage: 20 MG, QD (START DATE: PRE-STUDY)
     Route: 048
  17. ASPIRIN [Concomitant]
     Dosage: 75 MG, UNK
     Route: 048

REACTIONS (4)
  - ABDOMINAL PAIN [None]
  - NAUSEA [None]
  - VOMITING [None]
  - ACUTE ABDOMEN [None]
